FAERS Safety Report 5888382-5 (Version None)
Quarter: 2008Q3

REPORT INFORMATION
  Report Type: 
  Country: None (occurrence: None)
  Receive Date: 20080918
  Receipt Date: 20080909
  Transmission Date: 20090109
  Serious: Yes (Hospitalization)
  Sender: FDA-Public Use
  Company Number: JP-PFIZER INC-2008074942

PATIENT
  Sex: Female
  Weight: 35 kg

DRUGS (13)
  1. SU-011,248 [Suspect]
     Indication: COLORECTAL CANCER
     Route: 048
     Dates: start: 20080624
  2. IRINOTECAN HCL [Suspect]
     Indication: COLORECTAL CANCER
     Route: 042
     Dates: start: 20080624
  3. CALCIUM FOLINATE [Suspect]
     Indication: COLORECTAL CANCER
     Route: 042
     Dates: start: 20080624
  4. FLUOROURACIL [Suspect]
     Indication: COLORECTAL CANCER
     Route: 042
     Dates: start: 20080624
  5. FLUOROURACIL [Suspect]
     Route: 042
     Dates: start: 20080624
  6. MAGNESIUM OXIDE [Concomitant]
     Route: 048
  7. FERROUS FUMARATE [Concomitant]
     Route: 048
  8. RABEPRAZOLE SODIUM [Concomitant]
     Route: 048
     Dates: start: 20080805
  9. POVIDONE IODINE [Concomitant]
     Dates: start: 20080704
  10. SODIUM GUALENATE [Concomitant]
     Dates: start: 20080826
  11. LOPERAMIDE HYDROCHLORIDE [Concomitant]
     Route: 048
     Dates: start: 20080702
  12. NAPROXEN [Concomitant]
     Route: 048
     Dates: start: 20080724
  13. ZOLPIDEM TARTRATE [Concomitant]
     Route: 048
     Dates: start: 20080724

REACTIONS (1)
  - INTESTINAL OBSTRUCTION [None]
